FAERS Safety Report 9385052 (Version 1)
Quarter: 2013Q3

REPORT INFORMATION
  Report Type: Spontaneous
  Country: GB (occurrence: None)
  Receive Date: 20130701
  Receipt Date: 20130701
  Transmission Date: 20140515
  Serious: Yes (Other)
  Sender: FDA-Public Use
  Company Number: GB-1198994

PATIENT
  Age: 67 Year
  Sex: Male
  Weight: 79.8 kg

DRUGS (1)
  1. CILOXAN [Suspect]
     Route: 050
     Dates: start: 20130607, end: 20130610

REACTIONS (2)
  - Rash [None]
  - Skin reaction [None]
